FAERS Safety Report 23069294 (Version 1)
Quarter: 2023Q4

REPORT INFORMATION
  Report Type: Spontaneous
  Country: US (occurrence: None)
  Receive Date: 20231016
  Receipt Date: 20231016
  Transmission Date: 20240110
  Serious: Yes (Other)
  Sender: FDA-Public Use
  Company Number: None

PATIENT
  Age: 63 Year
  Sex: Male
  Weight: 81 kg

DRUGS (2)
  1. DOVATO [Suspect]
     Active Substance: DOLUTEGRAVIR SODIUM\LAMIVUDINE
  2. CIALIS [Suspect]
     Active Substance: TADALAFIL

REACTIONS (2)
  - Blood pressure decreased [None]
  - Presyncope [None]

NARRATIVE: CASE EVENT DATE: 20231013
